FAERS Safety Report 11112493 (Version 2)
Quarter: 2015Q2

REPORT INFORMATION
  Report Type: Report from Study
  Country: BY (occurrence: BY)
  Receive Date: 20150514
  Receipt Date: 20150526
  Transmission Date: 20150821
  Serious: Yes (Death)
  Sender: FDA-Public Use
  Company Number: BY-PFIZER INC-2015158365

PATIENT
  Age: 14 Year
  Sex: Male

DRUGS (10)
  1. ETOPOSIDE. [Suspect]
     Active Substance: ETOPOSIDE
     Indication: T-CELL LYMPHOMA
     Dosage: UNK
  2. PREDNISOLONE. [Suspect]
     Active Substance: PREDNISOLONE
     Indication: T-CELL LYMPHOMA
     Dosage: UNK
  3. IFOSFAMIDE. [Suspect]
     Active Substance: IFOSFAMIDE
     Indication: T-CELL LYMPHOMA
     Dosage: UNK
  4. VINDESINE [Suspect]
     Active Substance: VINDESINE
     Indication: T-CELL LYMPHOMA
     Dosage: UNK
  5. VINCRISTINE [Suspect]
     Active Substance: VINCRISTINE
     Indication: T-CELL LYMPHOMA
     Dosage: UNK
  6. METHOTREXATE SODIUM. [Suspect]
     Active Substance: METHOTREXATE SODIUM
     Indication: T-CELL LYMPHOMA
     Dosage: UNK
  7. DOXORUBICIN HCL [Suspect]
     Active Substance: DOXORUBICIN HYDROCHLORIDE
     Indication: T-CELL LYMPHOMA
     Dosage: UNK
  8. DEXAMETHASONE. [Suspect]
     Active Substance: DEXAMETHASONE
     Indication: T-CELL LYMPHOMA
     Dosage: UNK
  9. CYTARABINE. [Suspect]
     Active Substance: CYTARABINE
     Indication: T-CELL LYMPHOMA
     Dosage: UNK
  10. CYCLOPHOSPHAMIDE. [Suspect]
     Active Substance: CYCLOPHOSPHAMIDE
     Indication: T-CELL LYMPHOMA
     Dosage: UNK

REACTIONS (1)
  - Sepsis [Fatal]
